FAERS Safety Report 5366789-2 (Version None)
Quarter: 2007Q2

REPORT INFORMATION
  Report Type: 
  Country: None (occurrence: None)
  Receive Date: 20070622
  Receipt Date: 20060810
  Transmission Date: 20071010
  Serious: No
  Sender: FDA-Public Use
  Company Number: US-ASTRAZENECA-2006UW15977

PATIENT
  Age: 76 Year
  Sex: Female

DRUGS (1)
  1. RHINOCORT [Suspect]
     Indication: SINUS DISORDER
     Route: 045
     Dates: start: 20060809

REACTIONS (3)
  - ANXIETY [None]
  - HEADACHE [None]
  - PHARYNGOLARYNGEAL PAIN [None]
